FAERS Safety Report 7507814-X (Version None)
Quarter: 2011Q2

REPORT INFORMATION
  Report Type: 
  Country: None (occurrence: None)
  Receive Date: 20110527
  Receipt Date: 20110519
  Transmission Date: 20111010
  Serious: No
  Sender: FDA-Public Use
  Company Number: US-BIOGENIDEC-2011BI019090

PATIENT
  Sex: Female

DRUGS (2)
  1. TYSABRI [Suspect]
     Route: 042
     Dates: start: 20071019, end: 20091112
  2. TYSABRI [Suspect]
     Indication: MULTIPLE SCLEROSIS
     Route: 042
     Dates: start: 20110427

REACTIONS (6)
  - DIPLOPIA [None]
  - FATIGUE [None]
  - MULTIPLE SCLEROSIS [None]
  - APHASIA [None]
  - GAIT DISTURBANCE [None]
  - ASTHENIA [None]
